FAERS Safety Report 24025324 (Version 1)
Quarter: 2024Q2

REPORT INFORMATION
  Report Type: Report from Study
  Country: DE (occurrence: DE)
  Receive Date: 20240628
  Receipt Date: 20240628
  Transmission Date: 20240716
  Serious: No
  Sender: FDA-Public Use
  Company Number: DE-ROCHE-3355268

PATIENT
  Age: 45 Year
  Sex: Female
  Weight: 74.0 kg

DRUGS (4)
  1. PERTUZUMAB\TRASTUZUMAB [Suspect]
     Active Substance: PERTUZUMAB\TRASTUZUMAB
     Indication: Breast cancer
     Route: 058
     Dates: start: 20221223
  2. ADO-TRASTUZUMAB EMTANSINE [Suspect]
     Active Substance: ADO-TRASTUZUMAB EMTANSINE
     Indication: Breast cancer
     Dosage: LAST DOSE PRIOR EVENT 250 MG
     Route: 065
     Dates: start: 20230824, end: 20230824
  3. TAMOXIFEN [Concomitant]
     Active Substance: TAMOXIFEN
     Route: 048
     Dates: start: 2023
  4. GOSERELIN [Concomitant]
     Active Substance: GOSERELIN
     Route: 058
     Dates: start: 2023

REACTIONS (1)
  - Liver function test increased [Recovering/Resolving]

NARRATIVE: CASE EVENT DATE: 20230117
